FAERS Safety Report 19109155 (Version 2)
Quarter: 2022Q1

REPORT INFORMATION
  Report Type: Spontaneous
  Country: US (occurrence: US)
  Receive Date: 20210408
  Receipt Date: 20220210
  Transmission Date: 20220423
  Serious: Yes (Other)
  Sender: FDA-Public Use
  Company Number: US-MYLANLABS-2021M1020963

PATIENT
  Age: 44 Year
  Sex: Male
  Weight: 105 kg

DRUGS (9)
  1. VALSARTAN [Suspect]
     Active Substance: VALSARTAN
     Indication: Hypertension
     Dosage: UNK
     Dates: start: 20150129, end: 20160227
  2. OMNARIS [Concomitant]
     Active Substance: CICLESONIDE
     Indication: Hypersensitivity
     Dosage: 50 MICROGRAM, QD
     Dates: start: 20100924, end: 20140414
  3. NEXIUM [Concomitant]
     Active Substance: ESOMEPRAZOLE MAGNESIUM
     Indication: Gastrooesophageal reflux disease
     Dosage: 40 MILLIGRAM, QD
     Dates: start: 20110207, end: 20110705
  4. LISINOPRIL [Concomitant]
     Active Substance: LISINOPRIL
     Indication: Hypertension
     Dosage: 10 MILLIGRAM, QD
     Dates: start: 20110426, end: 20120406
  5. OMEPRAZOLE [Concomitant]
     Active Substance: OMEPRAZOLE
     Indication: Gastrooesophageal reflux disease
     Dosage: 40 MILLIGRAM, QD
     Dates: start: 20111230, end: 20190827
  6. CRESTOR [Concomitant]
     Active Substance: ROSUVASTATIN CALCIUM
     Indication: Blood cholesterol abnormal
     Dosage: 5 MILLIGRAM, QD
  7. ATORVASTATIN [Concomitant]
     Active Substance: ATORVASTATIN
     Indication: Blood cholesterol abnormal
     Dosage: 10 MILLIGRAM, QD
     Dates: start: 20120514, end: 20131007
  8. DIOVAN [Concomitant]
     Active Substance: VALSARTAN
     Indication: Hypertension
     Dosage: 80 MILLIGRAM, QD
     Dates: start: 20120423, end: 20130329
  9. DIOVAN [Concomitant]
     Active Substance: VALSARTAN
     Dosage: 160 MILLIGRAM, QD
     Dates: start: 20130625, end: 20140419

REACTIONS (16)
  - Rectal cancer stage III [Unknown]
  - Deafness [Unknown]
  - Blindness [Unknown]
  - Neuropathy peripheral [Unknown]
  - Amnesia [Unknown]
  - Feeling abnormal [Unknown]
  - Back pain [Unknown]
  - Disturbance in attention [Unknown]
  - Balance disorder [Unknown]
  - Depression [Unknown]
  - Anxiety [Unknown]
  - Neuralgia [Unknown]
  - Poor peripheral circulation [Unknown]
  - Sexual dysfunction [Unknown]
  - Fatigue [Unknown]
  - Dizziness [Unknown]

NARRATIVE: CASE EVENT DATE: 20180404
